FAERS Safety Report 18066052 (Version 1)
Quarter: 2020Q3

REPORT INFORMATION
  Report Type: Spontaneous
  Country: US (occurrence: US)
  Receive Date: 20200724
  Receipt Date: 20200724
  Transmission Date: 20201103
  Serious: Yes (Other)
  Sender: FDA-Public Use
  Company Number: US-FRESENIUS KABI-FK202007459

PATIENT
  Age: 59 Year
  Sex: Male
  Weight: 85.3 kg

DRUGS (8)
  1. AMIFAMPRIDINE PHOSPHATE [Suspect]
     Active Substance: AMIFAMPRIDINE PHOSPHATE
     Dosage: ONGOING
     Route: 048
     Dates: start: 20200605
  2. AMIFAMPRIDINE PHOSPHATE [Suspect]
     Active Substance: AMIFAMPRIDINE PHOSPHATE
     Indication: MYASTHENIC SYNDROME
     Dosage: 3X/DAY
     Route: 048
     Dates: start: 202005, end: 20200530
  3. CARBOPLATIN. [Suspect]
     Active Substance: CARBOPLATIN
     Indication: SMALL CELL LUNG CANCER
     Route: 065
     Dates: start: 20200529
  4. ETOPOSIDE (MANUFACTURER UNKNOWN) [Suspect]
     Active Substance: ETOPOSIDE
     Indication: SMALL CELL LUNG CANCER
     Route: 065
     Dates: start: 20200529
  5. AMIFAMPRIDINE PHOSPHATE [Suspect]
     Active Substance: AMIFAMPRIDINE PHOSPHATE
     Route: 048
     Dates: start: 20200530, end: 20200605
  6. AMIFAMPRIDINE PHOSPHATE [Suspect]
     Active Substance: AMIFAMPRIDINE PHOSPHATE
     Route: 048
     Dates: start: 20200530, end: 20200605
  7. ATEZOLIZUMAB. [Suspect]
     Active Substance: ATEZOLIZUMAB
     Indication: SMALL CELL LUNG CANCER
     Route: 065
     Dates: start: 20200529
  8. AMIFAMPRIDINE PHOSPHATE [Suspect]
     Active Substance: AMIFAMPRIDINE PHOSPHATE
     Route: 048
     Dates: start: 202005, end: 20200530

REACTIONS (2)
  - White blood cell count decreased [Unknown]
  - Dizziness [Unknown]

NARRATIVE: CASE EVENT DATE: 20200530
